FAERS Safety Report 24534491 (Version 1)
Quarter: 2024Q4

REPORT INFORMATION
  Report Type: Report from Study
  Country: JP (occurrence: JP)
  Receive Date: 20241022
  Receipt Date: 20241022
  Transmission Date: 20250115
  Serious: Yes (Death)
  Sender: SHIONOGI
  Company Number: JP-shionogi-202400001481

PATIENT
  Age: 8 Decade
  Sex: Male

DRUGS (1)
  1. CEFIDEROCOL [Suspect]
     Active Substance: CEFIDEROCOL
     Indication: Product used for unknown indication
     Route: 041

REACTIONS (1)
  - Death [Fatal]
